FAERS Safety Report 20868947 (Version 3)
Quarter: 2022Q3

REPORT INFORMATION
  Report Type: Spontaneous
  Country: DE (occurrence: DE)
  Receive Date: 20220524
  Receipt Date: 20220727
  Transmission Date: 20221026
  Serious: Yes (Other)
  Sender: FDA-Public Use
  Company Number: DE-BRISTOL-MYERS SQUIBB COMPANY-2022-043101

PATIENT
  Age: 82 Year
  Sex: Male
  Weight: 82 kg

DRUGS (1)
  1. ELIQUIS [Suspect]
     Active Substance: APIXABAN
     Indication: Cerebrovascular accident prophylaxis
     Dosage: TAKING ELIQUIS FOR APPROX. 2 YEARS
     Route: 048

REACTIONS (4)
  - Inguinal hernia [Unknown]
  - Post procedural haemorrhage [Recovered/Resolved]
  - Blood creatinine increased [Unknown]
  - Creatinine renal clearance decreased [Unknown]
